FAERS Safety Report 23847868 (Version 1)
Quarter: 2024Q2

REPORT INFORMATION
  Report Type: Spontaneous
  Country: US (occurrence: US)
  Receive Date: 20240513
  Receipt Date: 20240513
  Transmission Date: 20240716
  Serious: No
  Sender: FDA-Public Use
  Company Number: US-CIPLA LTD-2023US04238

PATIENT

DRUGS (4)
  1. ALBUTEROL [Suspect]
     Active Substance: ALBUTEROL
     Indication: Product used for unknown indication
     Dosage: UNK
     Route: 065
     Dates: start: 202307
  2. ALBUTEROL [Suspect]
     Active Substance: ALBUTEROL
     Dosage: 1 PUFF
     Route: 065
     Dates: start: 202307
  3. ALBUTEROL [Suspect]
     Active Substance: ALBUTEROL
     Dosage: 2 PUFFS
     Route: 065
     Dates: start: 202307
  4. ALBUTEROL [Suspect]
     Active Substance: ALBUTEROL
     Dosage: 3 PUFFS
     Route: 065
     Dates: start: 202307

REACTIONS (7)
  - Feeling jittery [Unknown]
  - Device delivery system issue [Unknown]
  - Incorrect dose administered by device [Unknown]
  - Intentional product use issue [Unknown]
  - Product administration error [Unknown]
  - Device malfunction [Unknown]
  - Dyspnoea [Unknown]

NARRATIVE: CASE EVENT DATE: 20230101
